FAERS Safety Report 20980373 (Version 1)
Quarter: 2022Q2

REPORT INFORMATION
  Report Type: Report from Study
  Country: FR (occurrence: FR)
  Receive Date: 20220620
  Receipt Date: 20220620
  Transmission Date: 20220721
  Serious: Yes (Death, Life-Threatening, Other)
  Sender: FDA-Public Use
  Company Number: FR-002147023-NVSC2022FR131831

PATIENT
  Age: 22 Year
  Sex: Male

DRUGS (6)
  1. OLANZAPINE [Suspect]
     Active Substance: OLANZAPINE
     Indication: Psychotic disorder
     Dosage: UNK UNK, UNKNOWN
     Route: 065
  2. LOXAPINE [Suspect]
     Active Substance: LOXAPINE
     Indication: Psychotic disorder
     Dosage: UNK, UNKNOWN
     Route: 065
  3. DIAZEPAM [Suspect]
     Active Substance: DIAZEPAM
     Indication: Product used for unknown indication
     Dosage: UNK, UNKNOWN
     Route: 065
  4. RANITIDINE [Suspect]
     Active Substance: RANITIDINE
     Indication: Emergency care
     Dosage: UNK, UNKNOWN
     Route: 065
  5. METRONIDAZOLE [Suspect]
     Active Substance: METRONIDAZOLE
     Indication: Emergency care
     Dosage: UNK, UNKNOWN
     Route: 065
  6. LIDOCAINE [Suspect]
     Active Substance: LIDOCAINE
     Indication: Emergency care
     Dosage: UNK, UNKNOWN
     Route: 065

REACTIONS (7)
  - Electrocardiogram QT prolonged [Fatal]
  - Sudden cardiac death [Fatal]
  - Cardio-respiratory arrest [Unknown]
  - Loss of consciousness [Unknown]
  - Fall [Unknown]
  - Feeling abnormal [Unknown]
  - Head injury [Unknown]

NARRATIVE: CASE EVENT DATE: 20120101
